FAERS Safety Report 21570590 (Version 1)
Quarter: 2022Q4

REPORT INFORMATION
  Report Type: Spontaneous
  Country: FR (occurrence: FR)
  Receive Date: 20221109
  Receipt Date: 20221109
  Transmission Date: 20230112
  Serious: Yes (Death, Other)
  Sender: FDA-Public Use
  Company Number: FR-CELLTRION INC.-2022FR018419

PATIENT

DRUGS (4)
  1. RITUXIMAB [Suspect]
     Active Substance: RITUXIMAB
     Indication: Haemophagocytic lymphohistiocytosis
     Dosage: 375 MG/M2
     Route: 042
  2. DABRAFENIB [Concomitant]
     Active Substance: DABRAFENIB
  3. METHYLPREDNISOLONE [Concomitant]
     Active Substance: METHYLPREDNISOLONE
     Dosage: 1 MG/KG
  4. TRAMETINIB [Concomitant]
     Active Substance: TRAMETINIB

REACTIONS (3)
  - Metastases to central nervous system [Fatal]
  - Hypogammaglobulinaemia [Unknown]
  - Off label use [Unknown]
